FAERS Safety Report 7330871-0 (Version None)
Quarter: 2011Q1

REPORT INFORMATION
  Report Type: 
  Country: None (occurrence: None)
  Receive Date: 20110304
  Receipt Date: 20110218
  Transmission Date: 20110831
  Serious: Yes (Hospitalization)
  Sender: FDA-Public Use
  Company Number: US-JNJFOC-20110207323

PATIENT
  Sex: Female
  Weight: 45 kg

DRUGS (20)
  1. VITAMINS NOS [Concomitant]
  2. DIMENHYDRINATE [Concomitant]
  3. METOCLOPRAMIDE [Concomitant]
  4. PANCRELIPASE [Concomitant]
  5. VASOPRESSIN [Concomitant]
  6. HYPROMELLOSE [Concomitant]
  7. DALTEPARIN SODIUM [Concomitant]
  8. CHLORHEXIDINE GLUCONATE [Concomitant]
  9. SALBUTAMOL [Concomitant]
  10. ACETAMINOPHEN [Suspect]
     Indication: PRODUCT USED FOR UNKNOWN INDICATION
  11. RANITIDINE [Suspect]
     Indication: PRODUCT USED FOR UNKNOWN INDICATION
  12. ACETAMINOPHEN [Suspect]
  13. SODIUM BICARBONATE [Concomitant]
  14. MIDAZOLAM HCL [Concomitant]
  15. NOREPINEPHRINE BITARTRATE [Concomitant]
  16. LEVOFLOXACIN [Concomitant]
  17. SENNOSIDE [Concomitant]
  18. GAMUNEX [Suspect]
     Indication: PRODUCT USED FOR UNKNOWN INDICATION
  19. GAMUNEX [Suspect]
  20. DOCUSATE SODIUM [Concomitant]

REACTIONS (1)
  - EMPYEMA [None]
